FAERS Safety Report 14231707 (Version 7)
Quarter: 2018Q3

REPORT INFORMATION
  Report Type: Report from Study
  Country: None (occurrence: JP)
  Receive Date: 20171128
  Receipt Date: 20180808
  Transmission Date: 20181010
  Serious: Yes (Death, Life-Threatening)
  Sender: FDA-Public Use
  Company Number: JP-ABBVIE-17P-087-2170747-00

PATIENT
  Age: 86 Year
  Sex: Male
  Weight: 49.4 kg

DRUGS (29)
  1. VENETOCLAX. [Suspect]
     Active Substance: VENETOCLAX
     Route: 048
     Dates: start: 20171013, end: 20171013
  2. GRANISETRON [Concomitant]
     Active Substance: GRANISETRON
     Indication: NAUSEA
     Route: 042
     Dates: start: 20171013, end: 20171014
  3. FUROSEMID [Concomitant]
     Active Substance: FUROSEMIDE
     Indication: CHRONIC KIDNEY DISEASE
     Route: 048
     Dates: start: 20171116, end: 20171208
  4. AMLODIPINE [Concomitant]
     Active Substance: AMLODIPINE BESYLATE
     Indication: CHRONIC KIDNEY DISEASE
     Route: 048
     Dates: start: 20170906, end: 20171208
  5. VENETOCLAX. [Suspect]
     Active Substance: VENETOCLAX
     Route: 048
     Dates: start: 20171014, end: 20171014
  6. VENETOCLAX. [Suspect]
     Active Substance: VENETOCLAX
     Route: 048
     Dates: start: 20171015, end: 20171117
  7. FEBUXOSTAT. [Concomitant]
     Active Substance: FEBUXOSTAT
     Indication: HYPERURICAEMIA
     Route: 048
     Dates: start: 20170906, end: 20171208
  8. LUNESTA [Concomitant]
     Active Substance: ESZOPICLONE
     Indication: INSOMNIA
     Route: 048
     Dates: start: 20170906, end: 20171208
  9. AZUNOL [Concomitant]
     Active Substance: SODIUM GUALENATE
     Indication: DERMATITIS
     Route: 003
     Dates: start: 20171123, end: 20171206
  10. SPIRONOLACTONE. [Concomitant]
     Active Substance: SPIRONOLACTONE
     Indication: CHRONIC KIDNEY DISEASE
     Route: 048
     Dates: start: 20170906, end: 20171208
  11. OTSUKA NORMAL SALINE [Concomitant]
     Route: 041
     Dates: start: 20171116
  12. POPIYODON [Concomitant]
     Indication: INFECTION PROPHYLAXIS
     Route: 049
     Dates: start: 20170927, end: 20171218
  13. WHITE PETROLATUM [Concomitant]
     Active Substance: PETROLATUM
     Indication: XEROSIS
     Route: 003
     Dates: start: 20171208, end: 20171218
  14. TAKECAB [Concomitant]
     Active Substance: VONOPRAZAN FUMURATE
     Indication: GASTRITIS PROPHYLAXIS
  15. FUROSEMID [Concomitant]
     Active Substance: FUROSEMIDE
     Route: 048
     Dates: start: 20171208, end: 20171217
  16. POLYMYXIN B SULFATE. [Concomitant]
     Active Substance: POLYMYXIN B SULFATE
     Indication: INFECTION PROPHYLAXIS
     Route: 048
     Dates: start: 20170927, end: 20171208
  17. GRANISETRON [Concomitant]
     Active Substance: GRANISETRON
     Indication: PYREXIA
  18. TAKECAB [Concomitant]
     Active Substance: VONOPRAZAN FUMURATE
     Indication: GASTRITIS PROPHYLAXIS
     Route: 048
     Dates: start: 20171014, end: 20171208
  19. OTSUKA NORMAL SALINE [Concomitant]
     Indication: FEBRILE NEUTROPENIA
     Route: 041
     Dates: start: 20171029, end: 20171203
  20. DALTEPARIN NA [Concomitant]
     Indication: ANGINA PECTORIS
     Route: 041
     Dates: start: 20171011, end: 20171218
  21. VENETOCLAX. [Suspect]
     Active Substance: VENETOCLAX
     Indication: ACUTE MYELOID LEUKAEMIA
     Route: 048
     Dates: start: 20171012, end: 20171012
  22. PASTARON [Concomitant]
     Active Substance: UREA
     Indication: XEROSIS
     Route: 003
     Dates: start: 20171105
  23. FANGUARD [Concomitant]
     Indication: FEBRILE NEUTROPENIA
     Route: 041
     Dates: start: 20171116
  24. CYTARABINE. [Suspect]
     Active Substance: CYTARABINE
     Indication: ACUTE MYELOID LEUKAEMIA
     Dosage: DAILY ON DAYS 1  10 OF EACH 28 DAY CYCLE
     Route: 058
     Dates: start: 20171012, end: 20171118
  25. ACELIO [Concomitant]
     Active Substance: ACETAMINOPHEN
     Indication: HYPONATRAEMIA
     Route: 041
     Dates: start: 20171120, end: 20171120
  26. FAMOTIDINE. [Concomitant]
     Active Substance: FAMOTIDINE
     Indication: GASTRITIS PROPHYLAXIS
     Route: 041
     Dates: start: 20171208, end: 20171218
  27. VENETOCLAX. [Suspect]
     Active Substance: VENETOCLAX
     Route: 048
     Dates: start: 20171118, end: 20171121
  28. MAGNESIUM OXIDE. [Concomitant]
     Active Substance: MAGNESIUM OXIDE
     Indication: CONSTIPATION
     Route: 048
     Dates: start: 20171013, end: 20171208
  29. ALOSENN [Concomitant]
     Active Substance: SENNA LEAF
     Indication: CONSTIPATION
     Route: 048
     Dates: start: 20171010, end: 20171218

REACTIONS (2)
  - Pneumonia [Fatal]
  - Cardiac failure congestive [Recovered/Resolved]

NARRATIVE: CASE EVENT DATE: 20171109
